FAERS Safety Report 21980728 (Version 3)
Quarter: 2023Q2

REPORT INFORMATION
  Report Type: Report from Study
  Country: US (occurrence: US)
  Receive Date: 20230211
  Receipt Date: 20230516
  Transmission Date: 20230721
  Serious: No
  Sender: FDA-Public Use
  Company Number: US-002147023-NVSC2023US029370

PATIENT
  Age: 59 Year
  Sex: Female

DRUGS (2)
  1. LEQVIO [Suspect]
     Active Substance: INCLISIRAN SODIUM
     Indication: Product used for unknown indication
     Dosage: UNK
     Route: 058
     Dates: start: 20230125
  2. LEQVIO [Suspect]
     Active Substance: INCLISIRAN SODIUM
     Dosage: UNK
     Route: 058
     Dates: start: 20230426

REACTIONS (5)
  - Abdominal discomfort [Unknown]
  - Gastrointestinal sounds abnormal [Recovering/Resolving]
  - Arthralgia [Recovering/Resolving]
  - Diarrhoea [Recovering/Resolving]
  - Diarrhoea [Recovered/Resolved]

NARRATIVE: CASE EVENT DATE: 20230101
